FAERS Safety Report 25977470 (Version 6)
Quarter: 2025Q4

REPORT INFORMATION
  Report Type: Spontaneous
  Country: JP (occurrence: JP)
  Receive Date: 20251030
  Receipt Date: 20251226
  Transmission Date: 20260117
  Serious: Yes (Death, Hospitalization)
  Sender: JOHNSON AND JOHNSON
  Company Number: JP-JNJFOC-20251032869

PATIENT
  Age: 8 Decade
  Sex: Female

DRUGS (5)
  1. UPTRAVI [Suspect]
     Active Substance: SELEXIPAG
     Indication: Pulmonary arterial hypertension
     Dosage: DOSE UNKNOWN
     Route: 048
  2. OPSUMIT [Suspect]
     Active Substance: MACITENTAN
     Indication: Pulmonary arterial hypertension
     Route: 048
     Dates: start: 2025
  3. OPSUMIT [Suspect]
     Active Substance: MACITENTAN
     Indication: Psoriatic arthropathy
  4. TRACLEER [Suspect]
     Active Substance: BOSENTAN
     Indication: Pulmonary arterial hypertension
     Dosage: DOSE UNKNOWN
     Route: 048
  5. TADALAFIL [Concomitant]
     Active Substance: TADALAFIL
     Indication: Pulmonary arterial hypertension
     Dosage: PERORAL MEDICINE
     Route: 048
     Dates: start: 2025

REACTIONS (3)
  - Pulmonary arterial hypertension [Fatal]
  - Cardiac failure [Fatal]
  - Colon cancer [Recovering/Resolving]

NARRATIVE: CASE EVENT DATE: 20250101
